FAERS Safety Report 5214795-0 (Version None)
Quarter: 2007Q1

REPORT INFORMATION
  Report Type: 
  Country: None (occurrence: None)
  Receive Date: 20070122
  Receipt Date: 20070122
  Transmission Date: 20070707
  Serious: Yes (Disabling, Other)
  Sender: FDA-Public Use
  Company Number: None

PATIENT
  Age: 69 Year
  Sex: Female
  Weight: 80.2867 kg

DRUGS (3)
  1. COMPAZINE [Suspect]
     Indication: CHEMOTHERAPY
     Dosage: 1 2 X DAY PO
     Route: 048
     Dates: start: 20061228, end: 20061231
  2. COMPAZINE [Suspect]
     Indication: NAUSEA
     Dosage: 1 2 X DAY PO
     Route: 048
     Dates: start: 20061228, end: 20061231
  3. COMPAZINE [Suspect]
     Indication: VOMITING
     Dosage: 1 2 X DAY PO
     Route: 048
     Dates: start: 20061228, end: 20061231

REACTIONS (1)
  - TARDIVE DYSKINESIA [None]
